FAERS Safety Report 17925083 (Version 1)
Quarter: 2020Q2

REPORT INFORMATION
  Report Type: Spontaneous
  Country: AU (occurrence: AU)
  Receive Date: 20200622
  Receipt Date: 20200622
  Transmission Date: 20200714
  Serious: Yes (Hospitalization)
  Sender: FDA-Public Use
  Company Number: AU-TASMAN PHARMA, INC.-2020TSM00249

PATIENT
  Sex: Male

DRUGS (48)
  1. CLOZAPINE. [Suspect]
     Active Substance: CLOZAPINE
     Dosage: 350 MG
     Dates: start: 20160915, end: 20161018
  2. CLOZAPINE. [Suspect]
     Active Substance: CLOZAPINE
     Dosage: 375 MG
     Dates: start: 20161019, end: 20161108
  3. CLOZAPINE. [Suspect]
     Active Substance: CLOZAPINE
     Dosage: UNK
     Dates: start: 20200609
  4. CLOZAPINE. [Suspect]
     Active Substance: CLOZAPINE
     Dosage: 350 MG
     Dates: start: 20151104, end: 20151227
  5. CLOZAPINE. [Suspect]
     Active Substance: CLOZAPINE
     Dosage: 100 MG
     Dates: start: 20160817, end: 20160823
  6. CLOZAPINE. [Suspect]
     Active Substance: CLOZAPINE
     Dosage: 400 MG
     Dates: start: 20180206, end: 20180220
  7. CLOZAPINE. [Suspect]
     Active Substance: CLOZAPINE
     Dosage: 500 MG
     Dates: start: 20180911, end: 20181005
  8. CLOZAPINE. [Suspect]
     Active Substance: CLOZAPINE
     Dosage: 200 MG
     Dates: start: 20160824, end: 20160829
  9. CLOZAPINE. [Suspect]
     Active Substance: CLOZAPINE
     Dosage: 425 MG
     Dates: start: 20181006, end: 20181105
  10. CLOZAPINE. [Suspect]
     Active Substance: CLOZAPINE
     Dosage: 350 MG
     Dates: start: 20160106, end: 20160802
  11. CLOZAPINE. [Suspect]
     Active Substance: CLOZAPINE
     Dosage: 500 MG
     Dates: start: 20180403, end: 20180410
  12. CLOZAPINE. [Suspect]
     Active Substance: CLOZAPINE
     Dosage: 275 MG
     Dates: start: 20161116, end: 20161122
  13. CLOZAPINE. [Suspect]
     Active Substance: CLOZAPINE
     Dosage: UNK
     Dates: start: 20160809, end: 20160816
  14. CLOZAPINE. [Suspect]
     Active Substance: CLOZAPINE
     Dosage: 75 MG
     Dates: start: 20171222, end: 20171228
  15. CLOZAPINE. [Suspect]
     Active Substance: CLOZAPINE
     Dosage: 500 MG
     Dates: start: 20180411, end: 20180910
  16. CLOZAPINE. [Suspect]
     Active Substance: CLOZAPINE
     Dosage: 400 MG
     Dates: start: 20190404, end: 20190423
  17. CLOZAPINE. [Suspect]
     Active Substance: CLOZAPINE
     Dosage: 300 MG
     Dates: start: 20150923, end: 20150929
  18. CLOZAPINE. [Suspect]
     Active Substance: CLOZAPINE
     Dosage: 125 MG
     Dates: start: 20161109, end: 20161115
  19. CLOZAPINE. [Suspect]
     Active Substance: CLOZAPINE
     Dosage: 300 MG
     Dates: start: 20180124, end: 20180129
  20. CLOZAPINE. [Suspect]
     Active Substance: CLOZAPINE
     Dosage: 375 MG
     Dates: start: 20190207, end: 20190307
  21. CLOZAPINE. [Suspect]
     Active Substance: CLOZAPINE
     Dosage: 125 MG
     Dates: start: 20171229, end: 20180103
  22. CLOZAPINE. [Suspect]
     Active Substance: CLOZAPINE
     Dosage: 375 MG
     Dates: start: 20190308, end: 20190403
  23. CLOZAPINE. [Suspect]
     Active Substance: CLOZAPINE
     Dosage: 400 MG
     Dates: start: 20181127, end: 20181223
  24. CLOZAPINE. [Suspect]
     Active Substance: CLOZAPINE
     Dosage: 300 MG
     Dates: start: 20160830, end: 20160914
  25. CLOZAPINE. [Suspect]
     Active Substance: CLOZAPINE
     Dosage: 375 MG
     Dates: start: 20161123, end: 20171217
  26. CLOZAPINE. [Suspect]
     Active Substance: CLOZAPINE
     Dosage: 250 MG
     Dates: start: 20180118, end: 20180123
  27. CLOZAPINE. [Suspect]
     Active Substance: CLOZAPINE
     Dosage: 450 MG
     Dates: start: 20180221, end: 20180402
  28. CLOZAPINE. [Suspect]
     Active Substance: CLOZAPINE
     Dosage: 100 MG
     Dates: start: 20150901, end: 20150907
  29. CLOZAPINE. [Suspect]
     Active Substance: CLOZAPINE
     Dosage: 375 MG
     Dates: start: 20190108, end: 20190206
  30. CLOZAPINE. [Suspect]
     Active Substance: CLOZAPINE
     Dosage: 450 MG
     Dates: start: 20190531, end: 20200603
  31. CLOZAPINE. [Suspect]
     Active Substance: CLOZAPINE
     Dosage: 350 MG
     Dates: start: 20131202, end: 20131216
  32. CLOZAPINE. [Suspect]
     Active Substance: CLOZAPINE
     Dosage: 350 MG
     Dates: start: 20151009, end: 20151014
  33. CLOZAPINE. [Suspect]
     Active Substance: CLOZAPINE
     Dosage: 350 MG
     Dates: start: 20180130, end: 20180205
  34. CLOZAPINE. [Suspect]
     Active Substance: CLOZAPINE
     Dosage: 425 MG
     Dates: start: 20181106, end: 20181126
  35. CLOZAPINE. [Suspect]
     Active Substance: CLOZAPINE
     Dosage: 350 MG
     Dates: start: 20131031, end: 20131111
  36. CLOZAPINE. [Suspect]
     Active Substance: CLOZAPINE
     Dosage: 200 MG
     Dates: start: 20180111, end: 20180117
  37. CLOZAPINE. [Suspect]
     Active Substance: CLOZAPINE
     Dosage: 350 MG
     Dates: start: 20131217, end: 20131226
  38. CLOZAPINE. [Suspect]
     Active Substance: CLOZAPINE
     Dosage: 350 MG
     Dates: start: 20151015, end: 20151103
  39. CLOZAPINE. [Suspect]
     Active Substance: CLOZAPINE
     Dosage: 50 MG
     Dates: start: 20171218, end: 20171221
  40. CLOZAPINE. [Suspect]
     Active Substance: CLOZAPINE
     Dosage: 175 MG
     Dates: start: 20180104, end: 20180110
  41. CLOZAPINE. [Suspect]
     Active Substance: CLOZAPINE
     Dosage: 375 MG
     Dates: start: 20181224, end: 20190107
  42. CLOZAPINE. [Suspect]
     Active Substance: CLOZAPINE
     Dosage: 425 MG
     Dates: start: 20190424, end: 20190530
  43. CLOZAPINE. [Suspect]
     Active Substance: CLOZAPINE
     Dosage: 225 MG
     Dates: start: 20150914, end: 20150922
  44. CLOZAPINE. [Suspect]
     Active Substance: CLOZAPINE
     Dosage: 350 MG
     Dates: start: 20131112, end: 20131201
  45. CLOZAPINE. [Suspect]
     Active Substance: CLOZAPINE
     Dosage: 350 MG
     Dates: start: 20151228, end: 20160104
  46. CLOZAPINE. [Suspect]
     Active Substance: CLOZAPINE
     Dosage: 350 MG
     Dates: start: 20131227, end: 20140427
  47. CLOZAPINE. [Suspect]
     Active Substance: CLOZAPINE
     Dosage: 200 MG
     Dates: start: 20150908, end: 20150913
  48. CLOZAPINE. [Suspect]
     Active Substance: CLOZAPINE
     Dosage: 325 MG
     Dates: start: 20150930, end: 20151008

REACTIONS (3)
  - Hospitalisation [Recovered/Resolved]
  - Unevaluable event [Recovered/Resolved]
  - Treatment noncompliance [Recovered/Resolved]

NARRATIVE: CASE EVENT DATE: 20140328
